FAERS Safety Report 9799456 (Version 1)
Quarter: 2014Q1

REPORT INFORMATION
  Report Type: Spontaneous
  Country: US (occurrence: None)
  Receive Date: 20140103
  Receipt Date: 20140103
  Transmission Date: 20141002
  Serious: No
  Sender: FDA-Public Use
  Company Number: None

PATIENT
  Age: 50 Year
  Sex: Female
  Weight: 67.3 kg

DRUGS (1)
  1. FORTEO [Suspect]
     Route: 058
     Dates: start: 20131127

REACTIONS (1)
  - Heart rate increased [None]
